FAERS Safety Report 17314130 (Version 1)
Quarter: 2020Q1

REPORT INFORMATION
  Report Type: Spontaneous
  Country: US (occurrence: US)
  Receive Date: 20200124
  Receipt Date: 20200124
  Transmission Date: 20200409
  Serious: No
  Sender: FDA-Public Use
  Company Number: US-DRREDDYS-USA/USA/20/0118504

PATIENT
  Sex: Male

DRUGS (2)
  1. CLARAVIS [Concomitant]
     Active Substance: ISOTRETINOIN
     Indication: PRODUCT USED FOR UNKNOWN INDICATION
     Dosage: RMA ISSUE DATES: 14 AUGUST 2019
  2. ZENATANE [Suspect]
     Active Substance: ISOTRETINOIN
     Indication: PRODUCT USED FOR UNKNOWN INDICATION
     Dosage: RMA ISSUE DATES: 16 AUGUST 2019, 16 OCTOBER 2019,15 OCTOBER 2019 AND 19 NOVEMBER 2019
     Route: 048

REACTIONS (1)
  - Drug intolerance [Unknown]
